FAERS Safety Report 26005311 (Version 1)
Quarter: 2025Q4

REPORT INFORMATION
  Report Type: Spontaneous
  Country: CH (occurrence: CH)
  Receive Date: 20251106
  Receipt Date: 20251106
  Transmission Date: 20260117
  Serious: Yes (Other)
  Sender: ROCHE
  Company Number: CH-ROCHE-10000337746

PATIENT
  Sex: Male

DRUGS (8)
  1. RITUXIMAB [Suspect]
     Active Substance: RITUXIMAB
     Indication: Whipple^s disease
     Dosage: 2 * 1000 MG AT AN INTERVAL OF 2 WEEKS, THEN EVERY 6 MONTHS
     Route: 065
  2. CORTISONE [Concomitant]
     Active Substance: CORTISONE
  3. PLAQUENIL [Concomitant]
     Active Substance: HYDROXYCHLOROQUINE SULFATE
  4. METHOTREXATE [Concomitant]
     Active Substance: METHOTREXATE
  5. SIMPONI [Concomitant]
     Active Substance: GOLIMUMAB
  6. INFLIXIMAB [Concomitant]
     Active Substance: INFLIXIMAB
  7. BARICITINIB [Concomitant]
     Active Substance: BARICITINIB
  8. AZATHIOPRINE [Concomitant]
     Active Substance: AZATHIOPRINE

REACTIONS (4)
  - Pain [Unknown]
  - Idiopathic intracranial hypertension [Unknown]
  - Myositis [Unknown]
  - Off label use [Unknown]
